FAERS Safety Report 12568345 (Version 6)
Quarter: 2017Q2

REPORT INFORMATION
  Report Type: Report from Study
  Country: BR (occurrence: BR)
  Receive Date: 20160718
  Receipt Date: 20170413
  Transmission Date: 20170830
  Serious: Yes (Hospitalization, Other)
  Sender: FDA-Public Use
  Company Number: PHHY2016BR094946

PATIENT
  Sex: Female
  Weight: 72 kg

DRUGS (2)
  1. AFINITOR [Suspect]
     Active Substance: EVEROLIMUS
     Indication: BREAST CANCER METASTATIC
     Dosage: 10 MG, QD
     Route: 048
     Dates: start: 201407, end: 2014
  2. AROMASIN [Concomitant]
     Active Substance: EXEMESTANE
     Indication: BREAST CANCER METASTATIC
     Dosage: 25 MG, QD
     Route: 048
     Dates: start: 201408

REACTIONS (28)
  - Middle insomnia [Unknown]
  - Hypertension [Unknown]
  - Decreased appetite [Recovered/Resolved]
  - Genital injury [Unknown]
  - Weight decreased [Unknown]
  - Stomatitis [Unknown]
  - Spinal disorder [Unknown]
  - Skin wound [Unknown]
  - Dizziness [Unknown]
  - Gingival injury [Unknown]
  - Vulvovaginal dryness [Unknown]
  - Nail disorder [Unknown]
  - Tooth loss [Unknown]
  - Headache [Recovered/Resolved]
  - Sleep apnoea syndrome [Unknown]
  - Onychoclasis [Not Recovered/Not Resolved]
  - Insomnia [Unknown]
  - Respiratory arrest [Unknown]
  - Feeding disorder [Unknown]
  - Impaired healing [Unknown]
  - Apnoea [Unknown]
  - Snoring [Unknown]
  - Mouth injury [Unknown]
  - Bone pain [Unknown]
  - Nail injury [Unknown]
  - Head injury [Unknown]
  - Oral disorder [Recovering/Resolving]
  - Skin lesion [Recovered/Resolved]

NARRATIVE: CASE EVENT DATE: 2014
